FAERS Safety Report 4781628-6 (Version None)
Quarter: 2005Q3

REPORT INFORMATION
  Report Type: 
  Country: None (occurrence: None)
  Receive Date: 20050927
  Receipt Date: 20050914
  Transmission Date: 20060218
  Serious: Yes (Hospitalization, Other)
  Sender: FDA-Public Use
  Company Number: 2005127822

PATIENT
  Age: 51 Year
  Sex: Female

DRUGS (4)
  1. PHENYTOIN SODIUM [Suspect]
     Indication: CONVULSION
     Dosage: 1000 MG (250 MG, 1 IN 1 TOTAL), INTRAVENOUS
     Route: 042
     Dates: start: 20050807, end: 20050907
  2. PHENYTOIN SODIUM [Suspect]
     Indication: CONVULSION
     Dosage: 300 MG (100 MG, 3 IN 1 D),  ORAL
     Route: 048
     Dates: start: 20050808, end: 20050904
  3. CEFUROXIME [Concomitant]
  4. LOSARTAN POTASSIUM W/HYDROCHLOROTHIAZIDE (HYDROCHLOROTHIAZIDE, LOSARTA [Concomitant]

REACTIONS (17)
  - ALANINE AMINOTRANSFERASE INCREASED [None]
  - ASPARTATE AMINOTRANSFERASE INCREASED [None]
  - ATELECTASIS [None]
  - BLOOD ALBUMIN DECREASED [None]
  - BLOOD ALKALINE PHOSPHATASE INCREASED [None]
  - BLOOD BILIRUBIN INCREASED [None]
  - BLOOD LACTATE DEHYDROGENASE INCREASED [None]
  - CENTRAL NERVOUS SYSTEM INFLAMMATION [None]
  - CHILLS [None]
  - CONVULSION [None]
  - HEADACHE [None]
  - NEUTROPENIA [None]
  - PLEURAL EFFUSION [None]
  - PURPURA [None]
  - PYREXIA [None]
  - RASH PAPULAR [None]
  - URINARY TRACT INFECTION [None]
